FAERS Safety Report 14577661 (Version 1)
Quarter: 2018Q1

REPORT INFORMATION
  Report Type: Spontaneous
  Country: US (occurrence: US)
  Receive Date: 20180227
  Receipt Date: 20180227
  Transmission Date: 20180509
  Serious: Yes (Other)
  Sender: FDA-Public Use
  Company Number: US-BAYER-2018-035752

PATIENT
  Age: 44 Year
  Sex: Female

DRUGS (1)
  1. MIRENA [Suspect]
     Active Substance: LEVONORGESTREL
     Indication: CONTRACEPTION
     Dosage: 20 MCG/24HR, CONT
     Route: 015
     Dates: start: 20140821

REACTIONS (7)
  - Idiopathic intracranial hypertension [None]
  - Vision blurred [None]
  - Headache [None]
  - Photophobia [None]
  - Visual impairment [None]
  - Loss of consciousness [None]
  - Tunnel vision [None]

NARRATIVE: CASE EVENT DATE: 20141113
